FAERS Safety Report 7945297-6 (Version None)
Quarter: 2011Q4

REPORT INFORMATION
  Report Type: 
  Country: None (occurrence: None)
  Receive Date: 20111129
  Receipt Date: 20110105
  Transmission Date: 20120403
  Serious: No
  Sender: FDA-Public Use
  Company Number: US-GLAXOSMITHKLINE-A0903346A

PATIENT
  Age: 31 Year
  Sex: Female

DRUGS (2)
  1. TOPAMAX [Concomitant]
  2. WELLBUTRIN SR [Suspect]
     Indication: BIPOLAR DISORDER
     Dosage: 200MG TWICE PER DAY
     Route: 048
     Dates: start: 20060101

REACTIONS (7)
  - INCREASED APPETITE [None]
  - ASTHENIA [None]
  - EMOTIONAL DISORDER [None]
  - DRUG INEFFECTIVE [None]
  - PRODUCT QUALITY ISSUE [None]
  - SOMNOLENCE [None]
  - INAPPROPRIATE AFFECT [None]
